FAERS Safety Report 10386563 (Version 1)
Quarter: 2014Q1

REPORT INFORMATION
  Report Type: Spontaneous
  Country: US (occurrence: None)
  Receive Date: 20140306
  Receipt Date: 20140306
  Transmission Date: 20141002
  Serious: Yes (Hospitalization)
  Sender: FDA-Public Use
  Company Number: 163-21880-13121393

PATIENT
  Age: 62 Year
  Sex: Female

DRUGS (4)
  1. REVLIMID [Suspect]
     Indication: MYELODYSPLASTIC SYNDROME
     Route: 048
     Dates: start: 20130606
  2. CALCIUM CARBONATE ANTACID [Concomitant]
  3. METHOCARBAMOL (METHOCARBAMOL) [Concomitant]
  4. PREDNISONE (PREDNISONE) [Concomitant]

REACTIONS (1)
  - Gout [None]
